FAERS Safety Report 4407043-2 (Version None)
Quarter: 2004Q3

REPORT INFORMATION
  Report Type: 
  Country: None (occurrence: None)
  Receive Date: 20040721
  Receipt Date: 20040713
  Transmission Date: 20050211
  Serious: Yes (Death)
  Sender: FDA-Public Use
  Company Number: 002007

PATIENT
  Age: 51 Year
  Sex: Female

DRUGS (1)
  1. METHOTREXATE [Suspect]

REACTIONS (6)
  - COUGH [None]
  - DRUG INTERACTION [None]
  - DYSPNOEA [None]
  - HOARSENESS [None]
  - MALAISE [None]
  - RHINORRHOEA [None]
